FAERS Safety Report 9206685 (Version 3)
Quarter: 2014Q1

REPORT INFORMATION
  Report Type: Report from Study
  Country: FR (occurrence: FR)
  Receive Date: 20130403
  Receipt Date: 20140318
  Transmission Date: 20141002
  Serious: Yes (Other)
  Sender: FDA-Public Use
  Company Number: FR-UCBSA-073951

PATIENT
  Age: 30 Year
  Sex: Female

DRUGS (3)
  1. CIMZIA [Suspect]
     Indication: RHEUMATOID ARTHRITIS
     Route: 058
     Dates: start: 20120504
  2. ARAVA [Suspect]
     Dosage: DOSE: 20 MG DAILY
     Dates: start: 20130103
  3. CORTANCYL [Suspect]
     Dosage: DAILY DOSE: 500 MG
     Dates: start: 20130103, end: 20130203

REACTIONS (1)
  - Fungal infection [Recovered/Resolved]
